FAERS Safety Report 23930911 (Version 3)
Quarter: 2024Q2

REPORT INFORMATION
  Report Type: Spontaneous
  Country: US (occurrence: US)
  Receive Date: 20240603
  Receipt Date: 20240607
  Transmission Date: 20240716
  Serious: Yes (Other)
  Sender: FDA-Public Use
  Company Number: US-INFO-20240120

PATIENT
  Age: 62 Year
  Sex: Male

DRUGS (8)
  1. NOREPINEPHRINE BITARTRATE [Suspect]
     Active Substance: NOREPINEPHRINE BITARTRATE
     Dosage: ()
     Route: 042
  2. FENTANYL [Concomitant]
     Active Substance: FENTANYL\FENTANYL CITRATE
     Dosage: ()
  3. PROPOFOL [Concomitant]
     Active Substance: PROPOFOL
     Dosage: ()
  4. ALBUMIN HUMAN [Concomitant]
     Active Substance: ALBUMIN HUMAN
  5. CALCIUM CHLORIDE [Concomitant]
     Active Substance: CALCIUM CHLORIDE
     Route: 042
  6. CISATRACURIUM [Concomitant]
     Active Substance: CISATRACURIUM
     Dosage: ()
  7. MEROPENEM [Concomitant]
     Active Substance: MEROPENEM
  8. MICAFUNGIN [Concomitant]
     Active Substance: MICAFUNGIN SODIUM

REACTIONS (4)
  - Incorrect dose administered [Unknown]
  - Product leakage [Unknown]
  - Product packaging issue [Unknown]
  - Hypotension [Unknown]
